FAERS Safety Report 7470781-1 (Version None)
Quarter: 2011Q2

REPORT INFORMATION
  Report Type: 
  Country: None (occurrence: None)
  Receive Date: 20110510
  Receipt Date: 20110502
  Transmission Date: 20111010
  Serious: Yes (Hospitalization, Other)
  Sender: FDA-Public Use
  Company Number: US-CEPHALON-2011001394

PATIENT
  Age: 97 Year
  Sex: Male
  Weight: 80 kg

DRUGS (1)
  1. PROVIGIL [Suspect]
     Indication: SLEEP APNOEA SYNDROME
     Route: 048
     Dates: start: 20101201, end: 20110301

REACTIONS (3)
  - URINARY INCONTINENCE [None]
  - LOSS OF CONSCIOUSNESS [None]
  - ARRHYTHMIA [None]
